FAERS Safety Report 6256417-6 (Version None)
Quarter: 2009Q3

REPORT INFORMATION
  Report Type: 
  Country: None (occurrence: None)
  Receive Date: 20090701
  Receipt Date: 20090701
  Transmission Date: 20100115
  Serious: Yes (Hospitalization)
  Sender: FDA-Public Use
  Company Number: None

PATIENT
  Age: 43 Year
  Sex: Male

DRUGS (9)
  1. RITUXIMAB [Suspect]
     Indication: B-CELL LYMPHOMA
     Dosage: 800MG X 1 IV
     Route: 042
     Dates: start: 20090520, end: 20090520
  2. ALEMTUZUMAB [Suspect]
     Indication: B-CELL LYMPHOMA
     Dosage: 30MG X 1 IV
     Route: 042
     Dates: start: 20090520, end: 20090520
  3. PREDNISONE TAB [Concomitant]
  4. CYCLOPHOSPHAMIDE [Concomitant]
  5. DOXOBUBICIN/ETOPOSIDE/VINCRISTINE [Concomitant]
  6. PALONESTRON [Concomitant]
  7. ESZOPICLONE [Concomitant]
  8. OXYCODONE HCL [Concomitant]
  9. OXYCODONE TBSR [Concomitant]

REACTIONS (7)
  - ABDOMINAL PAIN [None]
  - ANAEMIA [None]
  - DIARRHOEA [None]
  - GASTROINTESTINAL DISORDER [None]
  - GASTROINTESTINAL INFLAMMATION [None]
  - NEUTROPHIL COUNT DECREASED [None]
  - THROMBOCYTOPENIA [None]
